FAERS Safety Report 5025868-X (Version None)
Quarter: 2006Q2

REPORT INFORMATION
  Report Type: 
  Country: None (occurrence: None)
  Receive Date: 20060427
  Receipt Date: 20060218
  Transmission Date: 20061013
  Serious: Yes (Other)
  Sender: FDA-Public Use
  Company Number: 2006025447

PATIENT
  Age: 44 Year
  Sex: Female
  Weight: 95 kg

DRUGS (3)
  1. ZITHROMAX [Suspect]
     Indication: STREPTOCOCCAL INFECTION
     Dosage: SEE IMAGE
     Dates: start: 20060201, end: 20060217
  2. ZITHROMAX [Suspect]
     Indication: STREPTOCOCCAL INFECTION
     Dosage: SEE IMAGE
     Dates: start: 20060215
  3. AMPICILLIN [Concomitant]

REACTIONS (1)
  - TACHYCARDIA [None]
